FAERS Safety Report 7653435-8 (Version None)
Quarter: 2011Q3

REPORT INFORMATION
  Report Type: 
  Country: None (occurrence: None)
  Receive Date: 20110803
  Receipt Date: 20110801
  Transmission Date: 20111222
  Serious: No
  Sender: FDA-Public Use
  Company Number: US-PFIZER INC-2011174801

PATIENT
  Sex: Female
  Weight: 50 kg

DRUGS (2)
  1. LIPITOR [Suspect]
     Indication: BLOOD CHOLESTEROL INCREASED
     Dosage: 20 MG, 1X/DAY
     Route: 048
     Dates: start: 20060101
  2. INDERAL [Concomitant]
     Dosage: UNK

REACTIONS (2)
  - OEDEMA PERIPHERAL [None]
  - VENOUS INSUFFICIENCY [None]
